FAERS Safety Report 9344090 (Version 1)
Quarter: 2013Q2

REPORT INFORMATION
  Report Type: Spontaneous
  Country: US (occurrence: None)
  Receive Date: 20130610
  Receipt Date: 20130610
  Transmission Date: 20140414
  Serious: Yes (Hospitalization)
  Sender: FDA-Public Use
  Company Number: UTC-033568

PATIENT
  Age: 59 Year
  Sex: Female

DRUGS (1)
  1. REMODULIN [Suspect]
     Indication: COR PULMONALE CHRONIC
     Dosage: 0.03445 UG/KG, 1 IN 1 MIN
     Route: 058
     Dates: start: 20130212

REACTIONS (3)
  - Hyperhidrosis [None]
  - Drug administration error [None]
  - Dyspnoea [None]
